FAERS Safety Report 6532977-2 (Version None)
Quarter: 2010Q1

REPORT INFORMATION
  Report Type: 
  Country: None (occurrence: None)
  Receive Date: 20100111
  Receipt Date: 20091211
  Transmission Date: 20100710
  Serious: Yes (Other)
  Sender: FDA-Public Use
  Company Number: PHHY2009BE46809

PATIENT
  Sex: Female

DRUGS (15)
  1. RASILEZ [Suspect]
     Indication: HYPERTENSION
     Dosage: 150 MG
     Route: 048
     Dates: start: 20090427
  2. RASILEZ [Suspect]
     Indication: ALBUMINURIA
     Dosage: 300 MG
     Route: 048
  3. EMCONCOR [Concomitant]
     Indication: HYPERTENSION
     Dosage: 10 MG
     Route: 065
  4. ZESTORETIC [Concomitant]
     Indication: HYPERTENSION
     Dosage: 20/12.5 MG, TAKEN ON ODD DAYS
     Route: 065
  5. MOXONIDINE [Concomitant]
     Indication: HYPERTENSION
     Dosage: 0.4 MG
     Route: 065
  6. NOVORAPID [Concomitant]
     Route: 065
  7. LEVEMIR [Concomitant]
     Dosage: 40 MG
     Route: 065
  8. LIPITOR [Concomitant]
     Dosage: 40 MG
     Route: 065
  9. EPOETIN NOS [Concomitant]
     Route: 065
  10. COLLAGEN [Concomitant]
     Route: 065
  11. CALCIUM [Concomitant]
     Route: 065
  12. ALFACALCIDOL [Concomitant]
     Route: 065
  13. GLUCOSAMINE [Concomitant]
     Route: 065
  14. KAYEXALATE [Concomitant]
     Route: 065
  15. COVERAM (PERINDOPRIL ARGININE/AMLODIPINE) [Concomitant]
     Dosage: TAKEN ON EVEN DAYS
     Route: 065

REACTIONS (2)
  - CREATININE RENAL CLEARANCE DECREASED [None]
  - RENAL IMPAIRMENT [None]
